FAERS Safety Report 20669558 (Version 12)
Quarter: 2024Q3

REPORT INFORMATION
  Report Type: Report from Study
  Country: US (occurrence: US)
  Receive Date: 20220404
  Receipt Date: 20240828
  Transmission Date: 20241017
  Serious: Yes (Other)
  Sender: TAKEDA
  Company Number: US-TAKEDA-US202000175

PATIENT
  Sex: Female

DRUGS (2)
  1. HUMAN IMMUNOGLOBULIN G [Suspect]
     Active Substance: HUMAN IMMUNOGLOBULIN G
     Indication: Immunodeficiency common variable
     Dosage: 16 GRAM, Q2WEEKS
     Route: 065
     Dates: end: 2018
  2. HUMAN IMMUNOGLOBULIN G [Suspect]
     Active Substance: HUMAN IMMUNOGLOBULIN G
     Indication: Primary immunodeficiency syndrome
     Dosage: UNK
     Route: 058

REACTIONS (25)
  - Breast cancer [Unknown]
  - Fall [Unknown]
  - Alopecia [Unknown]
  - Fungal foot infection [Unknown]
  - Cystitis [Unknown]
  - Bladder dilatation [Unknown]
  - Urinary tract infection [Not Recovered/Not Resolved]
  - COVID-19 [Unknown]
  - Constipation [Unknown]
  - Skin laceration [Unknown]
  - Memory impairment [Unknown]
  - Finger deformity [Unknown]
  - Dysphonia [Unknown]
  - Vulvovaginal burning sensation [Unknown]
  - Balance disorder [Unknown]
  - Insomnia [Unknown]
  - Vision blurred [Unknown]
  - Oropharyngeal pain [Unknown]
  - Wheezing [Unknown]
  - Oedema [Unknown]
  - Pain in extremity [Not Recovered/Not Resolved]
  - Dizziness [Unknown]
  - Headache [Unknown]
  - Fatigue [Unknown]
  - Vulvovaginal pruritus [Unknown]
